FAERS Safety Report 7958692-6 (Version None)
Quarter: 2011Q4

REPORT INFORMATION
  Report Type: 
  Country: None (occurrence: None)
  Receive Date: 20111206
  Receipt Date: 20111129
  Transmission Date: 20120403
  Serious: No
  Sender: FDA-Public Use
  Company Number: US-TEVA-311833USA

PATIENT
  Sex: Female
  Weight: 53.572 kg

DRUGS (5)
  1. LEVEMIR [Concomitant]
     Indication: DIABETES MELLITUS
     Dosage: 22 IU (INTERNATIONAL UNIT);
     Dates: start: 19930101
  2. VITAMIN B COMPLEX CAP [Concomitant]
  3. FISH OIL [Concomitant]
     Indication: PRODUCT USED FOR UNKNOWN INDICATION
  4. PLAN B ONE-STEP [Suspect]
     Indication: POST COITAL CONTRACEPTION
     Dosage: 1.5 MILLIGRAM;
     Route: 048
     Dates: start: 20111126, end: 20111126
  5. NOVALOG INSULIN [Concomitant]
     Indication: DIABETES MELLITUS
     Dosage: SLIDING SCALE
     Dates: start: 19930101

REACTIONS (5)
  - MENSTRUATION IRREGULAR [None]
  - FEELING ABNORMAL [None]
  - SOMNOLENCE [None]
  - FATIGUE [None]
  - INCREASED APPETITE [None]
